FAERS Safety Report 5257492-8 (Version None)
Quarter: 2007Q1

REPORT INFORMATION
  Report Type: 
  Country: None (occurrence: None)
  Receive Date: 20070307
  Receipt Date: 20060905
  Transmission Date: 20070707
  Serious: No
  Sender: FDA-Public Use
  Company Number: US-GLAXOSMITHKLINE-A0617671A

PATIENT
  Age: 79 Year
  Sex: Female

DRUGS (12)
  1. REQUIP [Suspect]
     Indication: RESTLESS LEGS SYNDROME
     Route: 048
     Dates: start: 20060801
  2. TYLENOL [Suspect]
     Route: 065
     Dates: end: 20060801
  3. XANAX [Suspect]
     Route: 065
     Dates: end: 20060801
  4. INDERAL [Concomitant]
  5. LASIX [Concomitant]
  6. POTASSIUM ACETATE [Concomitant]
  7. ZOCOR [Concomitant]
  8. PREVACID [Concomitant]
  9. VITAMIN [Concomitant]
  10. ASPIRIN [Concomitant]
  11. FOSAMAX [Concomitant]
  12. CALCIUM [Concomitant]

REACTIONS (2)
  - INSOMNIA [None]
  - NAUSEA [None]
